FAERS Safety Report 23845327 (Version 1)
Quarter: 2024Q2

REPORT INFORMATION
  Report Type: Spontaneous
  Country: DE (occurrence: DE)
  Receive Date: 20240511
  Receipt Date: 20240511
  Transmission Date: 20240715
  Serious: Yes (Death)
  Sender: FDA-Public Use
  Company Number: DE-GERMAN-LIT/DEU/24/0006822

PATIENT
  Age: 30 Year
  Sex: Female

DRUGS (18)
  1. CYCLOPHOSPHAMIDE [Suspect]
     Active Substance: CYCLOPHOSPHAMIDE
     Indication: Large granular lymphocytosis
  2. CYCLOPHOSPHAMIDE [Suspect]
     Active Substance: CYCLOPHOSPHAMIDE
     Indication: Haemophagocytic lymphohistiocytosis
  3. DOXORUBICIN [Suspect]
     Active Substance: DOXORUBICIN
     Indication: Large granular lymphocytosis
  4. DOXORUBICIN [Suspect]
     Active Substance: DOXORUBICIN
     Indication: Haemophagocytic lymphohistiocytosis
  5. VINCRISTINE [Suspect]
     Active Substance: VINCRISTINE
     Indication: Large granular lymphocytosis
  6. VINCRISTINE [Suspect]
     Active Substance: VINCRISTINE
     Indication: Haemophagocytic lymphohistiocytosis
  7. PREDNISONE [Suspect]
     Active Substance: PREDNISONE
     Indication: Large granular lymphocytosis
  8. PREDNISONE [Suspect]
     Active Substance: PREDNISONE
     Indication: Haemophagocytic lymphohistiocytosis
  9. DEXAMETHASONE [Suspect]
     Active Substance: DEXAMETHASONE
     Indication: Haemophagocytic lymphohistiocytosis
  10. DEXAMETHASONE [Suspect]
     Active Substance: DEXAMETHASONE
     Indication: Large granular lymphocytosis
  11. ETOPOSIDE [Suspect]
     Active Substance: ETOPOSIDE
     Indication: Haemophagocytic lymphohistiocytosis
  12. ETOPOSIDE [Suspect]
     Active Substance: ETOPOSIDE
     Indication: Large granular lymphocytosis
  13. METHOTREXATE [Suspect]
     Active Substance: METHOTREXATE
     Indication: Haemophagocytic lymphohistiocytosis
  14. METHOTREXATE [Suspect]
     Active Substance: METHOTREXATE
     Indication: Large granular lymphocytosis
  15. ANAKINRA [Suspect]
     Active Substance: ANAKINRA
     Indication: Haemophagocytic lymphohistiocytosis
  16. ANAKINRA [Suspect]
     Active Substance: ANAKINRA
     Indication: Large granular lymphocytosis
  17. RUXOLITINIB [Suspect]
     Active Substance: RUXOLITINIB
     Indication: Haemophagocytic lymphohistiocytosis
  18. RUXOLITINIB [Suspect]
     Active Substance: RUXOLITINIB
     Indication: Large granular lymphocytosis

REACTIONS (3)
  - Infection [Fatal]
  - Disease progression [Fatal]
  - Drug ineffective for unapproved indication [Fatal]
